FAERS Safety Report 5044315-5 (Version None)
Quarter: 2006Q2

REPORT INFORMATION
  Report Type: 
  Country: None (occurrence: None)
  Receive Date: 20060629
  Receipt Date: 20060619
  Transmission Date: 20061013
  Serious: Yes (Death)
  Sender: FDA-Public Use
  Company Number: GXKR2006US03460

PATIENT
  Age: 36 Year
  Sex: Female

DRUGS (6)
  1. HYDRALAZINE (NGX) (HYDRALAZINE) [Suspect]
     Indication: HYPERTENSION
     Dosage: 100 MG, QD,
  2. ATENOLOL [Concomitant]
  3. CLONIDINE [Concomitant]
  4. NIFEDIPINE [Concomitant]
  5. FOSINOPRIL SODIUM [Concomitant]
  6. LEVOFLOXACIN [Concomitant]

REACTIONS (22)
  - ARTHRALGIA [None]
  - BLOOD CREATINE PHOSPHOKINASE INCREASED [None]
  - BLOOD LACTATE DEHYDROGENASE ABNORMAL [None]
  - CARDIOMEGALY [None]
  - CONNECTIVE TISSUE DISORDER [None]
  - DELIRIUM [None]
  - DIFFUSE ALVEOLAR DAMAGE [None]
  - DIZZINESS [None]
  - GENERAL PHYSICAL HEALTH DETERIORATION [None]
  - HEART RATE INCREASED [None]
  - HEART SOUNDS ABNORMAL [None]
  - HYPOTENSION [None]
  - HYPOXIA [None]
  - INFECTION [None]
  - LUPUS PNEUMONITIS [None]
  - LUPUS-LIKE SYNDROME [None]
  - LYMPHADENOPATHY [None]
  - LYMPHOMA [None]
  - PERICARDIAL EFFUSION [None]
  - PLEURAL EFFUSION [None]
  - PYREXIA [None]
  - RESPIRATORY ALKALOSIS [None]
